FAERS Safety Report 4435642-0 (Version None)
Quarter: 2004Q3

REPORT INFORMATION
  Report Type: 
  Country: None (occurrence: None)
  Receive Date: 20040726
  Receipt Date: 20040513
  Transmission Date: 20050211
  Serious: No
  Sender: FDA-Public Use
  Company Number: USA040566713

PATIENT
  Age: 77 Year
  Sex: Female
  Weight: 55 kg

DRUGS (6)
  1. FORTEO [Suspect]
     Indication: OSTEOPOROSIS
     Dosage: 20 UG/1 DAY
     Dates: start: 20040727
  2. FOSAMAX [Concomitant]
  3. TETRACYCLINE [Concomitant]
  4. IBUPROFEN [Concomitant]
  5. MULTI-VITAMIN [Concomitant]
  6. CITRACAL (CALCIUM CITRATE) [Concomitant]

REACTIONS (1)
  - MUSCULOSKELETAL STIFFNESS [None]
